FAERS Safety Report 7682533-8 (Version None)
Quarter: 2011Q3

REPORT INFORMATION
  Report Type: 
  Country: None (occurrence: None)
  Receive Date: 20110810
  Receipt Date: 20110728
  Transmission Date: 20111222
  Serious: Yes (Other)
  Sender: FDA-Public Use
  Company Number: 2011MA010875

PATIENT
  Age: 61 Year
  Sex: Female

DRUGS (5)
  1. MIRTAZAPINE [Suspect]
     Dosage: 45 MG;QD;
  2. LYRICA [Suspect]
     Dosage: 50 MG;TID;
  3. LORAZEPAM [Concomitant]
  4. QUETIAPINE [Concomitant]
  5. ZOPICLONE [Concomitant]

REACTIONS (2)
  - HEPATIC STEATOSIS [None]
  - OEDEMA PERIPHERAL [None]
